FAERS Safety Report 8835869 (Version 1)
Quarter: 2012Q4

REPORT INFORMATION
  Report Type: 
  Country: IT (occurrence: IT)
  Receive Date: 20121011
  Receipt Date: 20121011
  Transmission Date: 20130627
  Serious: Yes (Death)
  Sender: FDA-Public Use
  Company Number: IT-PFIZER INC-2012252533

PATIENT

DRUGS (1)
  1. XANAX [Suspect]
     Dosage: UNK

REACTIONS (1)
  - Death [Fatal]
